FAERS Safety Report 5878218-0 (Version None)
Quarter: 2008Q3

REPORT INFORMATION
  Report Type: 
  Country: None (occurrence: None)
  Receive Date: 20080909
  Receipt Date: 20080909
  Transmission Date: 20090109
  Serious: Yes (Hospitalization)
  Sender: FDA-Public Use
  Company Number: None

PATIENT
  Age: 52 Year
  Sex: Female
  Weight: 82.1011 kg

DRUGS (8)
  1. VELCADE [Suspect]
     Indication: ADENOID CYSTIC CARCINOMA
     Dosage: STARTED 1.3 MG/M2 THEN DECREASED 1.0 MG/M2
     Dates: start: 20080401, end: 20080905
  2. ADRIAMYCIN [Suspect]
     Indication: ADENOID CYSTIC CARCINOMA
     Dosage: 20 MG/M2
     Dates: start: 20080401, end: 20080902
  3. CLONAZEPAM [Concomitant]
  4. FENTANYL [Concomitant]
  5. GABAPENTIN [Concomitant]
  6. LORAZEPAM [Concomitant]
  7. OLANZAPINE [Concomitant]
  8. EFFEXOR XR [Concomitant]

REACTIONS (5)
  - CONSTIPATION [None]
  - NAUSEA [None]
  - PAIN [None]
  - PYREXIA [None]
  - VOMITING [None]
